FAERS Safety Report 9216717 (Version 2)
Quarter: 2013Q4

REPORT INFORMATION
  Report Type: Spontaneous
  Country: US (occurrence: US)
  Receive Date: 20130408
  Receipt Date: 20131211
  Transmission Date: 20140711
  Serious: No
  Sender: FDA-Public Use
  Company Number: US-PFIZER INC-2013108274

PATIENT
  Sex: Female

DRUGS (2)
  1. CELEBREX [Suspect]
     Dosage: 200 MG, UNK
  2. LYRICA [Suspect]
     Dosage: UNK

REACTIONS (2)
  - Pain in extremity [Unknown]
  - Drug effect incomplete [Unknown]
